FAERS Safety Report 24559287 (Version 2)
Quarter: 2025Q1

REPORT INFORMATION
  Report Type: Spontaneous
  Country: DE (occurrence: DE)
  Receive Date: 20241029
  Receipt Date: 20250122
  Transmission Date: 20250409
  Serious: Yes (Hospitalization, Other)
  Sender: ORGANON
  Company Number: DE-009507513-2410DEU010802

PATIENT
  Age: 74 Year
  Sex: Male
  Weight: 81 kg

DRUGS (2)
  1. SIMVASTATIN [Suspect]
     Active Substance: SIMVASTATIN
     Indication: Hyperlipidaemia
     Dosage: 20 MILLIGRAM, QD
     Route: 048
     Dates: start: 1995
  2. PNEUMOVAX 23 [Concomitant]
     Active Substance: PNEUMOCOCCAL VACCINE, POLYVALENT 23
     Indication: Prophylaxis
     Route: 058
     Dates: start: 20231207

REACTIONS (6)
  - Pulmonary embolism [Unknown]
  - Diabetes mellitus [Unknown]
  - Heart failure with reduced ejection fraction [Unknown]
  - Extranodal marginal zone B-cell lymphoma (MALT type) stage IV [Unknown]
  - Hypercholesterolaemia [Unknown]
  - Hypertension [Unknown]

NARRATIVE: CASE EVENT DATE: 19950101
